FAERS Safety Report 11171702 (Version 3)
Quarter: 2015Q2

REPORT INFORMATION
  Report Type: Spontaneous
  Country: ZA (occurrence: ZA)
  Receive Date: 20150608
  Receipt Date: 20150622
  Transmission Date: 20150821
  Serious: Yes (Other)
  Sender: FDA-Public Use
  Company Number: ZA-UCBSA-2015018079

PATIENT
  Age: 10 Year
  Sex: Male
  Weight: 23 kg

DRUGS (3)
  1. KEPPRA [Suspect]
     Active Substance: LEVETIRACETAM
     Indication: MYOCLONIC EPILEPSY
     Dosage: UNK
  2. EPILIM [Suspect]
     Active Substance: VALPROATE SODIUM
     Indication: PRODUCT USED FOR UNKNOWN INDICATION
     Dosage: UNK
  3. LAMICTIN [Suspect]
     Active Substance: LAMOTRIGINE
     Indication: EPILEPSY
     Dosage: UNK

REACTIONS (11)
  - Drug ineffective [Unknown]
  - Seizure [Unknown]
  - Faecal incontinence [Unknown]
  - Aura [Unknown]
  - Petit mal epilepsy [Unknown]
  - Serology test [Unknown]
  - Tonic convulsion [Unknown]
  - Near drowning [Unknown]
  - Urinary incontinence [Unknown]
  - Loss of consciousness [Unknown]
  - Headache [Unknown]
